FAERS Safety Report 18357253 (Version 14)
Quarter: 2020Q4

REPORT INFORMATION
  Report Type: Report from Study
  Country: PA (occurrence: PA)
  Receive Date: 20201007
  Receipt Date: 20201123
  Transmission Date: 20210114
  Serious: Yes (Other)
  Sender: FDA-Public Use
  Company Number: PA-JNJFOC-20200925323

PATIENT
  Age: 23 Year
  Sex: Female

DRUGS (8)
  1. CYMBALTA [Concomitant]
     Active Substance: DULOXETINE HYDROCHLORIDE
     Dates: end: 202010
  2. QUETIAPINE. [Concomitant]
     Active Substance: QUETIAPINE
  3. SPRAVATO [Suspect]
     Active Substance: ESKETAMINE
  4. LAMICTAL [Concomitant]
     Active Substance: LAMOTRIGINE
     Dates: end: 202010
  5. VITAMINE D [Concomitant]
     Active Substance: CHOLECALCIFEROL
  6. SPRAVATO [Suspect]
     Active Substance: ESKETAMINE
  7. QUETIAPINE. [Concomitant]
     Active Substance: QUETIAPINE
     Dates: start: 202010
  8. SPRAVATO [Suspect]
     Active Substance: ESKETAMINE
     Indication: DEPRESSION
     Dates: start: 20200911

REACTIONS (22)
  - Suicidal ideation [Unknown]
  - Flatulence [Unknown]
  - Hyperhidrosis [Recovered/Resolved]
  - Feeling hot [Recovered/Resolved]
  - Hypoaesthesia [Unknown]
  - Gastritis [Unknown]
  - Vomiting [Unknown]
  - Bipolar I disorder [Unknown]
  - Nasal congestion [Recovered/Resolved]
  - Fatigue [Unknown]
  - Vision blurred [Recovered/Resolved]
  - Abdominal pain upper [Unknown]
  - Off label use [Not Recovered/Not Resolved]
  - Dissociative disorder [Recovered/Resolved]
  - Nausea [Recovered/Resolved]
  - Dysgeusia [Recovered/Resolved]
  - Ear discomfort [Recovered/Resolved]
  - Abdominal pain upper [Unknown]
  - Drug ineffective [Unknown]
  - Dizziness [Recovered/Resolved]
  - Dissociation [Unknown]
  - Feeling abnormal [Recovered/Resolved]

NARRATIVE: CASE EVENT DATE: 202009
